FAERS Safety Report 5737940-7 (Version None)
Quarter: 2008Q2

REPORT INFORMATION
  Report Type: 
  Country: None (occurrence: None)
  Receive Date: 20080509
  Receipt Date: 20080428
  Transmission Date: 20081010
  Serious: Yes (Hospitalization)
  Sender: FDA-Public Use
  Company Number: 2008S1007186

PATIENT
  Age: 44 Year
  Sex: Female

DRUGS (5)
  1. TICLODIPINE             (TICLOPIDINE) [Suspect]
     Indication: ANTIPHOSPHOLIPID SYNDROME
  2. PREDNISOLONE [Concomitant]
  3. CORTICOSTEROIDS      (CORTICOSTEROIDS) [Concomitant]
  4. WARFARIN SODIUM [Concomitant]
  5. ASPIRIN [Concomitant]

REACTIONS (7)
  - ANTIBODY TEST POSITIVE [None]
  - BLOOD LACTATE DEHYDROGENASE [None]
  - HAEMOGLOBIN DECREASED [None]
  - RED BLOOD CELL SCHISTOCYTES PRESENT [None]
  - SYSTEMIC LUPUS ERYTHEMATOSUS [None]
  - THROMBOTIC MICROANGIOPATHY [None]
  - WHITE BLOOD CELL COUNT DECREASED [None]
